FAERS Safety Report 17473055 (Version 1)
Quarter: 2020Q1

REPORT INFORMATION
  Report Type: Spontaneous
  Country: US (occurrence: US)
  Receive Date: 20200228
  Receipt Date: 20200228
  Transmission Date: 20200409
  Serious: Yes (Death)
  Sender: FDA-Public Use
  Company Number: None

PATIENT
  Age: 81 Year
  Sex: Male
  Weight: 66.68 kg

DRUGS (13)
  1. BICALUTAMIDE. [Concomitant]
     Active Substance: BICALUTAMIDE
  2. CALCITROL [Concomitant]
  3. MIDODRINE [Concomitant]
     Active Substance: MIDODRINE
  4. OXYCODONE [Concomitant]
     Active Substance: OXYCODONE
  5. TORSEMIDE. [Concomitant]
     Active Substance: TORSEMIDE
  6. WARFARIN [Concomitant]
     Active Substance: WARFARIN
  7. GABAPENTIN. [Concomitant]
     Active Substance: GABAPENTIN
  8. ACYCLOVIR. [Concomitant]
     Active Substance: ACYCLOVIR
  9. EPIPEN [Concomitant]
     Active Substance: EPINEPHRINE
  10. LUMIGAN [Concomitant]
     Active Substance: BIMATOPROST
  11. LUPRON [Concomitant]
     Active Substance: LEUPROLIDE ACETATE
  12. OSCAL [Concomitant]
     Active Substance: CALCIUM CARBONATE
  13. ABIRTATERONE [Suspect]
     Active Substance: ABIRATERONE ACETATE
     Indication: PROSTATE CANCER
     Route: 048
     Dates: start: 20190301

REACTIONS (1)
  - Death [None]
